FAERS Safety Report 9083961 (Version 1)
Quarter: 2013Q1

REPORT INFORMATION
  Report Type: Report from Study
  Country: US (occurrence: US)
  Receive Date: 20130131
  Receipt Date: 20130131
  Transmission Date: 20140127
  Serious: No
  Sender: FDA-Public Use
  Company Number: US-ABBOTT-12P-163-0989716-00

PATIENT
  Age: 78 Year
  Sex: Female

DRUGS (13)
  1. HUMIRA [Suspect]
     Indication: RHEUMATOID ARTHRITIS
     Dates: start: 20120305
  2. METHOTREXATE [Concomitant]
     Indication: RHEUMATOID ARTHRITIS
     Dosage: 2.5MG 6 TABLETS DAILY
     Route: 048
  3. TRIAMETERENE [Concomitant]
     Indication: BLOOD PRESSURE
     Dosage: 75/50MG DAILY
     Route: 048
  4. VERAPAPMIL [Concomitant]
     Indication: BLOOD PRESSURE
     Dosage: 240MG DAILY
     Route: 048
  5. MAGNESIUM [Concomitant]
     Indication: PRODUCT USED FOR UNKNOWN INDICATION
     Dosage: DAILY
     Route: 048
  6. CHLORIDE [Concomitant]
     Indication: PRODUCT USED FOR UNKNOWN INDICATION
     Dosage: 10MG DAILY
     Route: 048
  7. PROPRANOLOL [Concomitant]
     Indication: PALPITATIONS
     Dosage: 10MG DAILY
     Route: 048
  8. LORAZEPAM [Concomitant]
     Indication: RELAXATION THERAPY
     Dosage: 0.5MG AT BEDTIME
     Route: 048
  9. LORAZEPAM [Concomitant]
     Indication: SLEEP DISORDER
  10. VITAMIN C WITH APPLE CIDER VINEGAR AND APPLE JUICE [Concomitant]
     Indication: PRODUCT USED FOR UNKNOWN INDICATION
     Dosage: THREE TIMES WEEKLY
  11. VITAMIN E [Concomitant]
     Indication: EYE DISORDER
     Dosage: 400UNITS DAILY
     Route: 048
  12. VITAMIN D [Concomitant]
     Indication: PRODUCT USED FOR UNKNOWN INDICATION
     Dosage: 1000UNITS DAILY
     Route: 048
  13. CALCIUM [Concomitant]
     Indication: PRODUCT USED FOR UNKNOWN INDICATION
     Dosage: 1200MG DAILY
     Route: 048

REACTIONS (3)
  - Parosmia [Not Recovered/Not Resolved]
  - Dry throat [Not Recovered/Not Resolved]
  - Cough [Not Recovered/Not Resolved]
